FAERS Safety Report 7214814-6 (Version None)
Quarter: 2011Q1

REPORT INFORMATION
  Report Type: 
  Country: None (occurrence: None)
  Receive Date: 20110107
  Receipt Date: 20100310
  Transmission Date: 20110831
  Serious: No
  Sender: FDA-Public Use
  Company Number: A0849514A

PATIENT
  Age: 52 Year
  Sex: Male

DRUGS (1)
  1. LOVAZA [Suspect]
     Dosage: 2CAP TWICE PER DAY
     Route: 048

REACTIONS (6)
  - ORAL MUCOSAL EXFOLIATION [None]
  - HYPOSMIA [None]
  - ROTATOR CUFF SYNDROME [None]
  - DYSPEPSIA [None]
  - GLOSSODYNIA [None]
  - HYPOGEUSIA [None]
